FAERS Safety Report 5532179-2 (Version None)
Quarter: 2007Q4

REPORT INFORMATION
  Report Type: 
  Country: None (occurrence: None)
  Receive Date: 20071203
  Receipt Date: 20071126
  Transmission Date: 20080405
  Serious: Yes (Hospitalization, Disabling)
  Sender: FDA-Public Use
  Company Number: CA-AVENTIS-200720889GDDC

PATIENT
  Age: 65 Year
  Sex: Female

DRUGS (8)
  1. ARAVA [Suspect]
     Indication: RHEUMATOID ARTHRITIS
     Route: 048
     Dates: end: 20071001
  2. LOVASTATIN [Concomitant]
     Dosage: DOSE: UNK
     Route: 048
  3. VASOTEC                            /00935901/ [Concomitant]
     Dosage: DOSE: UNK
     Route: 048
  4. HYDROCHLOROTHIAZIDE [Concomitant]
     Dosage: DOSE: UNK
     Route: 048
  5. METFORMIN HCL [Concomitant]
     Dosage: DOSE: UNK
     Route: 048
  6. FOLIC ACID [Concomitant]
     Dosage: DOSE: UNK
     Route: 048
  7. ACETYLSALICYLIC ACID SRT [Concomitant]
     Dosage: DOSE: UNK
     Route: 048
  8. GLYBURIDE [Concomitant]
     Dosage: DOSE: UNK
     Route: 048

REACTIONS (2)
  - DYSPNOEA [None]
  - PULMONARY HYPERTENSION [None]
